FAERS Safety Report 15088217 (Version 1)
Quarter: 2018Q2

REPORT INFORMATION
  Report Type: Spontaneous
  Country: DE (occurrence: DE)
  Receive Date: 20180629
  Receipt Date: 20180629
  Transmission Date: 20180711
  Serious: Yes (Hospitalization)
  Sender: FDA-Public Use
  Company Number: DE-TEVA-2018-DE-914780

PATIENT
  Age: 88 Year
  Sex: Female
  Weight: 52 kg

DRUGS (11)
  1. LEVOTHYROXIN SODIUM [Concomitant]
     Active Substance: LEVOTHYROXINE SODIUM
     Dosage: 50 MICROGRAM DAILY;
     Route: 048
  2. LISINOPRIL. [Concomitant]
     Active Substance: LISINOPRIL
     Dosage: 30 MG, 0.5-0-0.5-0, TABLETTEN
     Route: 048
  3. TORASEMID [Concomitant]
     Active Substance: TORSEMIDE
     Dosage: 5 MG, 1-0-0-0, TABLETTEN
     Route: 048
  4. NOVALGIN (METAMIZOLE SODIUM) [Concomitant]
     Active Substance: METAMIZOLE SODIUM
     Route: 048
  5. ASS 100MG HEXAL [Concomitant]
     Dosage: 100 MILLIGRAM DAILY;
     Route: 048
  6. BISOPROLOL [Suspect]
     Active Substance: BISOPROLOL
     Dosage: 10 MILLIGRAM DAILY;
     Route: 048
  7. NEBIVOLOL. [Suspect]
     Active Substance: NEBIVOLOL
     Dosage: 10 EINMALIG, 1-0-0-0, TABLETTEN
     Route: 048
  8. VIGANTOLETTEN 1000I.E. [Concomitant]
     Dosage: 1000 IE, 1-0-0-0, TABLETTEN
     Route: 048
  9. ATORVASTATIN [Concomitant]
     Active Substance: ATORVASTATIN
     Dosage: 40 MILLIGRAM DAILY; 40 MG, 0-0-1-0, TABLETTEN
     Route: 048
  10. EXELON 4,6 MG/24 STUNDEN [Concomitant]
     Dosage: 4.6 MILLIGRAM DAILY; 4.6 MG / TAG, 1-0-0-0, PFLASTER TRANSDERMAL
     Route: 062
  11. ALENDRONIC ACID [Concomitant]
     Active Substance: ALENDRONIC ACID
     Dosage: 70 MILLIGRAM DAILY;
     Route: 048

REACTIONS (4)
  - Hypertension [Unknown]
  - Bradycardia [Unknown]
  - Drug prescribing error [Unknown]
  - Hypertensive emergency [Unknown]
